FAERS Safety Report 19212709 (Version 1)
Quarter: 2021Q2

REPORT INFORMATION
  Report Type: Spontaneous
  Country: HR (occurrence: HR)
  Receive Date: 20210504
  Receipt Date: 20210504
  Transmission Date: 20210717
  Serious: Yes (Hospitalization, Other)
  Sender: FDA-Public Use
  Company Number: HR-ELI_LILLY_AND_COMPANY-HR202104009975

PATIENT
  Age: 66 Year
  Sex: Male

DRUGS (6)
  1. PEMETREXED. [Suspect]
     Active Substance: PEMETREXED
     Dosage: 1000 MG INTRAVENOUS
     Route: 042
     Dates: start: 20210308
  2. PEMETREXED. [Suspect]
     Active Substance: PEMETREXED
     Indication: LUNG ADENOCARCINOMA
     Dosage: 1000 MG, UNKNOWN
     Route: 042
     Dates: start: 2020, end: 20210119
  3. KEYTRUDA [Suspect]
     Active Substance: PEMBROLIZUMAB
     Dosage: 200 UNK
     Route: 042
     Dates: start: 20210308
  4. KEYTRUDA [Suspect]
     Active Substance: PEMBROLIZUMAB
     Indication: LUNG ADENOCARCINOMA
     Dosage: 200 MG, UNKNOWN
     Route: 042
     Dates: start: 2020
  5. CISPLATIN. [Suspect]
     Active Substance: CISPLATIN
     Indication: LUNG ADENOCARCINOMA
     Dosage: 150 MG, UNKNOWN
     Route: 065
     Dates: start: 2020, end: 2020
  6. CISPLATIN. [Suspect]
     Active Substance: CISPLATIN
     Dosage: 130 MG, UNKNOWN
     Route: 065
     Dates: start: 2020, end: 20201119

REACTIONS (16)
  - Lymphocyte count increased [Unknown]
  - Macrocytosis [Unknown]
  - Haemoglobin decreased [Unknown]
  - Monocyte count decreased [Unknown]
  - Mean cell haemoglobin increased [Unknown]
  - Off label use [Unknown]
  - Neutropenia [Unknown]
  - Red blood cell count decreased [Unknown]
  - Eosinophil count increased [Unknown]
  - Basophil count increased [Unknown]
  - Platelet count decreased [Unknown]
  - Pulmonary embolism [Unknown]
  - Haematocrit decreased [Unknown]
  - Leukopenia [Unknown]
  - Mean cell haemoglobin concentration increased [Unknown]
  - Dyspnoea exertional [Unknown]

NARRATIVE: CASE EVENT DATE: 2020
